FAERS Safety Report 11343737 (Version 5)
Quarter: 2016Q1

REPORT INFORMATION
  Report Type: Report from Study
  Country: NZ (occurrence: NZ)
  Receive Date: 20150806
  Receipt Date: 20160107
  Transmission Date: 20160525
  Serious: Yes (Other)
  Sender: FDA-Public Use
  Company Number: NZ-ABBVIE-15K-118-1436787-00

PATIENT
  Sex: Female

DRUGS (4)
  1. HUMIRA [Suspect]
     Active Substance: ADALIMUMAB
     Route: 058
  2. HUMIRA [Suspect]
     Active Substance: ADALIMUMAB
     Indication: PSORIATIC ARTHROPATHY
     Route: 058
     Dates: start: 20150624
  3. HUMIRA [Suspect]
     Active Substance: ADALIMUMAB
     Route: 058
     Dates: start: 201507
  4. IBUPROFEN. [Suspect]
     Active Substance: IBUPROFEN
     Indication: PSORIATIC ARTHROPATHY
     Route: 065

REACTIONS (12)
  - Intervertebral disc protrusion [Recovered/Resolved]
  - Femoral nerve injury [Unknown]
  - Peripheral swelling [Unknown]
  - C-reactive protein abnormal [Unknown]
  - Intervertebral disc protrusion [Unknown]
  - Arthralgia [Unknown]
  - Unevaluable event [Unknown]
  - Neuralgia [Unknown]
  - Incorrect dose administered [Unknown]
  - Wrong technique in product usage process [Unknown]
  - Drug ineffective [Unknown]
  - Influenza like illness [Unknown]

NARRATIVE: CASE EVENT DATE: 2015
